FAERS Safety Report 14362353 (Version 1)
Quarter: 2018Q1

REPORT INFORMATION
  Report Type: Spontaneous
  Country: US (occurrence: US)
  Receive Date: 20180108
  Receipt Date: 20180108
  Transmission Date: 20180509
  Serious: Yes (Disabling)
  Sender: FDA-Public Use
  Company Number: US-TEVA-2018-US-843089

PATIENT
  Age: 57 Year
  Sex: Male

DRUGS (1)
  1. TRANSMUCOSAL FENTANYL CITRATE [Suspect]
     Active Substance: FENTANYL CITRATE
     Indication: PRODUCT USED FOR UNKNOWN INDICATION
     Route: 065

REACTIONS (2)
  - Drug dose omission [Unknown]
  - Bedridden [Unknown]

NARRATIVE: CASE EVENT DATE: 201712
